FAERS Safety Report 19094051 (Version 1)
Quarter: 2021Q2

REPORT INFORMATION
  Report Type: Spontaneous
  Country: SK (occurrence: SK)
  Receive Date: 20210405
  Receipt Date: 20210405
  Transmission Date: 20210717
  Serious: Yes (Other)
  Sender: FDA-Public Use
  Company Number: SK-BAUSCH-BL-2021-010910

PATIENT
  Sex: Male

DRUGS (10)
  1. DEXAMETHASONE. [Suspect]
     Active Substance: DEXAMETHASONE
     Dates: start: 201411, end: 201502
  2. VELCADE [Suspect]
     Active Substance: BORTEZOMIB
     Indication: PRODUCT USED FOR UNKNOWN INDICATION
     Dosage: 5TH COURSE OF CVD AND AND 1ST PART OF 6TH COURSE
     Route: 065
     Dates: start: 201602
  3. CALCIUM CARBONATE. [Concomitant]
     Active Substance: CALCIUM CARBONATE
     Indication: PRODUCT USED FOR UNKNOWN INDICATION
  4. ACICLOVIR [Concomitant]
     Active Substance: ACYCLOVIR
     Indication: PRODUCT USED FOR UNKNOWN INDICATION
  5. ZOLEDRONIC ACID. [Concomitant]
     Active Substance: ZOLEDRONIC ACID
     Indication: PRODUCT USED FOR UNKNOWN INDICATION
  6. CYCLOPHOSPHAMIDE. [Suspect]
     Active Substance: CYCLOPHOSPHAMIDE
     Indication: PRODUCT USED FOR UNKNOWN INDICATION
     Route: 065
     Dates: start: 201411, end: 201502
  7. VELCADE [Suspect]
     Active Substance: BORTEZOMIB
     Dates: start: 201411, end: 201502
  8. SULFAMETHOXAZOLE;TRIMETHOPRIM [Concomitant]
     Active Substance: SULFAMETHOXAZOLE\TRIMETHOPRIM
     Indication: PRODUCT USED FOR UNKNOWN INDICATION
  9. DEXAMETHASONE. [Suspect]
     Active Substance: DEXAMETHASONE
     Indication: PRODUCT USED FOR UNKNOWN INDICATION
     Dosage: PROGRESSIVE IGA LEVEL GIVEN 5TH COURSE OF CVD AND 1ST PART OF 6TH COURSE
     Route: 065
     Dates: start: 201602
  10. CYCLOPHOSPHAMIDE. [Suspect]
     Active Substance: CYCLOPHOSPHAMIDE
     Dosage: PROGRESSIVE IGA LEVEL GIVEN 5TH COURSE OF CVD AND 1ST PART OF 6TH COURSE
     Route: 065
     Dates: start: 201602

REACTIONS (6)
  - Headache [Unknown]
  - Peripheral sensory neuropathy [Unknown]
  - Abdominal pain upper [Unknown]
  - Phlebitis [Unknown]
  - Leukopenia [Unknown]
  - Dyspepsia [Unknown]
